FAERS Safety Report 16200741 (Version 2)
Quarter: 2019Q2

REPORT INFORMATION
  Report Type: Spontaneous
  Country: GB (occurrence: GB)
  Receive Date: 20190416
  Receipt Date: 20190603
  Transmission Date: 20190711
  Serious: Yes (Other)
  Sender: FDA-Public Use
  Company Number: GB-CONCORDIA PHARMACEUTICALS INC.-E2B_00019438

PATIENT
  Age: 36 Year
  Sex: Female

DRUGS (2)
  1. PREDNISOLONE. [Suspect]
     Active Substance: PREDNISOLONE
     Indication: SARCOIDOSIS
     Dosage: DOSE REDUCTION
  2. PREDNISOLONE. [Suspect]
     Active Substance: PREDNISOLONE
     Dosage: REMAINED ON PREDNISOLONE

REACTIONS (2)
  - Infection [Recovering/Resolving]
  - Endocarditis bacterial [Not Recovered/Not Resolved]
